FAERS Safety Report 24970608 (Version 3)
Quarter: 2025Q3

REPORT INFORMATION
  Report Type: Spontaneous
  Country: US (occurrence: US)
  Receive Date: 20250214
  Receipt Date: 20250829
  Transmission Date: 20251020
  Serious: Yes (Other)
  Sender: UCB
  Company Number: US-UCBSA-2025007512

PATIENT
  Sex: Female

DRUGS (2)
  1. BIMZELX [Suspect]
     Active Substance: BIMEKIZUMAB-BKZX
     Indication: Psoriasis
     Dosage: 320 MILLIGRAM, EV 4 WEEKS
     Route: 058
     Dates: start: 202501
  2. BIMZELX [Suspect]
     Active Substance: BIMEKIZUMAB-BKZX
     Dosage: 320 MILLIGRAM, EV 8 WEEKS
     Route: 058

REACTIONS (8)
  - Haemorrhoids [Unknown]
  - Haemorrhoid operation [Unknown]
  - Frequent bowel movements [Unknown]
  - Diarrhoea [Unknown]
  - Night sweats [Unknown]
  - Psoriasis [Recovered/Resolved]
  - Stress [Unknown]
  - Ear infection [Unknown]

NARRATIVE: CASE EVENT DATE: 20250101
